FAERS Safety Report 14353268 (Version 1)
Quarter: 2018Q1

REPORT INFORMATION
  Report Type: Spontaneous
  Country: FR (occurrence: FR)
  Receive Date: 20180105
  Receipt Date: 20180105
  Transmission Date: 20180509
  Serious: Yes (Hospitalization)
  Sender: FDA-Public Use
  Company Number: FR-009507513-1712FRA013456

PATIENT
  Age: 76 Year
  Sex: Female
  Weight: 72 kg

DRUGS (2)
  1. INVANZ [Suspect]
     Active Substance: ERTAPENEM SODIUM
     Indication: INFECTION
     Dosage: 1 DF, QD, POWDER FOR SOLUTION TO DILUTE FOR INFUSION
     Route: 042
     Dates: start: 20171106, end: 20171120
  2. TARGOCID [Suspect]
     Active Substance: TEICOPLANIN
     Indication: INFECTION
     Dosage: 800 MG, QD, LYOPHILISATE AND SOLUTION FOR PARENTERAL USE
     Route: 042
     Dates: start: 20171106, end: 20171120

REACTIONS (3)
  - Neutropenia [Recovered/Resolved]
  - Lymphopenia [Recovering/Resolving]
  - Platelet count decreased [Recovered/Resolved]

NARRATIVE: CASE EVENT DATE: 20171120
